FAERS Safety Report 17228924 (Version 3)
Quarter: 2020Q2

REPORT INFORMATION
  Report Type: Spontaneous
  Country: US (occurrence: US)
  Receive Date: 20200103
  Receipt Date: 20200625
  Transmission Date: 20200713
  Serious: Yes (Hospitalization, Other)
  Sender: FDA-Public Use
  Company Number: US-BAYER-2019-237835

PATIENT
  Age: 77 Year
  Sex: Female
  Weight: 130 kg

DRUGS (22)
  1. CLARITIN-D 12 HOUR [Suspect]
     Active Substance: LORATADINE\PSEUDOEPHEDRINE SULFATE
  2. PREDNISONE. [Concomitant]
     Active Substance: PREDNISONE
  3. CALCIUM WITH D3 [Concomitant]
  4. VITAMIN B12 [Concomitant]
     Active Substance: CYANOCOBALAMIN
  5. FOLIC ACID. [Concomitant]
     Active Substance: FOLIC ACID
  6. REFRESH [POVIDONE] [Concomitant]
  7. IRON [Concomitant]
     Active Substance: IRON
  8. SYNTHROID [Suspect]
     Active Substance: LEVOTHYROXINE SODIUM
     Dosage: UNK
     Route: 048
     Dates: start: 2014
  9. LANSOPRAZOLE. [Concomitant]
     Active Substance: LANSOPRAZOLE
  10. MAGNESIUM [Concomitant]
     Active Substance: MAGNESIUM
  11. TEMAZEPAM. [Concomitant]
     Active Substance: TEMAZEPAM
  12. SOMA COMPLEX [Concomitant]
  13. NITROGLYCERINE [Concomitant]
     Active Substance: NITROGLYCERIN
  14. LEVOTHYROXINE. [Concomitant]
     Active Substance: LEVOTHYROXINE
  15. METHOTREXATE. [Concomitant]
     Active Substance: METHOTREXATE
  16. HUMIRA [Suspect]
     Active Substance: ADALIMUMAB
     Dosage: 40 MG
     Route: 058
     Dates: start: 201509, end: 2019
  17. CALCIUM [Concomitant]
     Active Substance: CALCIUM
  18. METOPROLOL. [Concomitant]
     Active Substance: METOPROLOL
  19. REFRESH REPAIR [Concomitant]
     Active Substance: CARBOXYMETHYLCELLULOSE SODIUM\GLYCERIN
  20. PENTASA [Concomitant]
     Active Substance: MESALAMINE
  21. VITAMIN D3 [Concomitant]
     Active Substance: CHOLECALCIFEROL
  22. RISDONE [Concomitant]
     Active Substance: RISPERIDONE

REACTIONS (22)
  - Malignant neoplasm of eyelid [Not Recovered/Not Resolved]
  - Impaired healing [Recovered/Resolved]
  - Weight decreased [Not Recovered/Not Resolved]
  - Eye pruritus [Not Recovered/Not Resolved]
  - Immunosuppression [Unknown]
  - Pneumonia [Recovered/Resolved]
  - Pain in extremity [Unknown]
  - Sinusitis [Not Recovered/Not Resolved]
  - Hepatic cirrhosis [Unknown]
  - Mucous stools [Unknown]
  - Abnormal faeces [Not Recovered/Not Resolved]
  - Muscle spasms [Unknown]
  - Hepatic steatosis [Not Recovered/Not Resolved]
  - Insomnia [Not Recovered/Not Resolved]
  - Headache [Not Recovered/Not Resolved]
  - Scleritis [Not Recovered/Not Resolved]
  - Basal cell carcinoma [Recovered/Resolved]
  - Tooth fracture [Recovered/Resolved]
  - Arthritis [Unknown]
  - Diarrhoea [Recovered/Resolved]
  - Off label use [None]
  - Abdominal pain [Unknown]

NARRATIVE: CASE EVENT DATE: 2017
